FAERS Safety Report 4493895-7 (Version None)
Quarter: 2004Q4

REPORT INFORMATION
  Report Type: 
  Country: None (occurrence: None)
  Receive Date: 20041105
  Receipt Date: 20041027
  Transmission Date: 20050328
  Serious: Yes (Death, Other)
  Sender: FDA-Public Use
  Company Number: US-JNJFOC-20031002568

PATIENT
  Sex: Male

DRUGS (13)
  1. REMICADE [Suspect]
     Indication: CROHN'S DISEASE
     Route: 042
  2. PREDNISONE [Concomitant]
  3. COLACE [Concomitant]
  4. DILTIAZEM [Concomitant]
  5. MERCAPTOPURINE [Concomitant]
  6. MORPHINE [Concomitant]
  7. TRAMADOL HCL [Concomitant]
  8. FUROSEMIDE [Concomitant]
  9. SENNOSIDE [Concomitant]
  10. HYDROXYZINE [Concomitant]
  11. CYANCOBALAMIN [Concomitant]
  12. ERYTHROPOETIN [Concomitant]
  13. IRON [Concomitant]

REACTIONS (8)
  - BRONCHOPULMONARY ASPERGILLOSIS [None]
  - CD4 LYMPHOCYTES DECREASED [None]
  - HYPONATRAEMIA [None]
  - MULTI-ORGAN FAILURE [None]
  - ORAL CANDIDIASIS [None]
  - PNEUMOCYSTIS CARINII PNEUMONIA [None]
  - PSEUDOMONAS INFECTION [None]
  - SPUTUM CULTURE POSITIVE [None]
